FAERS Safety Report 18475580 (Version 2)
Quarter: 2020Q4

REPORT INFORMATION
  Report Type: Report from Study
  Country: JP (occurrence: JP)
  Receive Date: 20201106
  Receipt Date: 20201119
  Transmission Date: 20210114
  Serious: Yes (Hospitalization)
  Sender: FDA-Public Use
  Company Number: JP-BRISTOL-MYERS SQUIBB COMPANY-BMS-2020-092709

PATIENT
  Age: 74 Year
  Sex: Male
  Weight: 51.3 kg

DRUGS (7)
  1. BMS-986310. [Suspect]
     Active Substance: BMS-986310
     Indication: GASTRIC CANCER
     Dosage: 40 MILLIGRAM, QD
     Route: 048
     Dates: start: 20201021, end: 20201028
  2. CILNIDIPINE [Concomitant]
     Active Substance: CILNIDIPINE
     Indication: HYPERTENSION
     Dosage: 10 MILLIGRAM, QD
     Route: 048
     Dates: start: 20200710
  3. MAGNESIUM OXIDE. [Concomitant]
     Active Substance: MAGNESIUM OXIDE
     Indication: CONSTIPATION
     Dosage: 330 MG, Q8H
     Route: 048
     Dates: start: 20200926
  4. LOXOPROFEN [Concomitant]
     Active Substance: LOXOPROFEN
     Indication: ARTHRALGIA
     Dosage: 60 MG, Q8H
     Route: 048
     Dates: start: 20200820
  5. NIVOLUMAB [Suspect]
     Active Substance: NIVOLUMAB
     Indication: GASTRIC CANCER
     Dosage: 480 MILLIGRAM, QD
     Route: 041
     Dates: start: 20201021
  6. AZILVA [Concomitant]
     Active Substance: AZILSARTAN KAMEDOXOMIL
     Indication: HYPERTENSION
     Dosage: 20 MG, EVERYDAY
     Route: 048
     Dates: start: 20200926
  7. REBAMIPIDE [Concomitant]
     Active Substance: REBAMIPIDE
     Indication: GASTRITIS PROPHYLAXIS
     Dosage: 100 MG, Q8H
     Route: 048
     Dates: start: 20200820

REACTIONS (1)
  - Arthritis [Recovering/Resolving]

NARRATIVE: CASE EVENT DATE: 20201023
